FAERS Safety Report 25588303 (Version 2)
Quarter: 2025Q3

REPORT INFORMATION
  Report Type: Report from Study
  Country: US (occurrence: US)
  Receive Date: 20250722
  Receipt Date: 20250725
  Transmission Date: 20251020
  Serious: Yes (Hospitalization)
  Sender: BOEHRINGER INGELHEIM
  Company Number: US-BoehringerIngelheim-2025-BI-026525

PATIENT
  Sex: Female

DRUGS (1)
  1. OFEV [Suspect]
     Active Substance: NINTEDANIB
     Indication: Idiopathic pulmonary fibrosis
     Dates: start: 20250402

REACTIONS (12)
  - Haematemesis [Unknown]
  - Hyponatraemia [Unknown]
  - Myocardial stunning [Recovering/Resolving]
  - Hypotension [Unknown]
  - Dehydration [Unknown]
  - Vomiting [Unknown]
  - Insomnia [Unknown]
  - Urinary tract infection [Unknown]
  - Nausea [Not Recovered/Not Resolved]
  - Mouth ulceration [Recovered/Resolved]
  - Localised infection [Recovered/Resolved]
  - Micturition urgency [Unknown]
